FAERS Safety Report 5727736-4 (Version None)
Quarter: 2008Q2

REPORT INFORMATION
  Report Type: 
  Country: None (occurrence: None)
  Receive Date: 20080505
  Receipt Date: 20080423
  Transmission Date: 20081010
  Serious: Yes (Hospitalization)
  Sender: FDA-Public Use
  Company Number: JP-ROCHE-561251

PATIENT
  Age: 67 Year
  Sex: Female
  Weight: 43 kg

DRUGS (5)
  1. PEGASYS [Suspect]
     Dosage: REDUCED DOSE
     Route: 065
  2. PEGASYS [Suspect]
     Dosage: START DATE: HOSPITAL DAY 7
     Route: 065
  3. PEGASYS [Suspect]
     Route: 065
  4. COPEGUS [Suspect]
     Dosage: REDUCED DOSE
     Route: 065
  5. COPEGUS [Suspect]
     Route: 065

REACTIONS (3)
  - DISSEMINATED INTRAVASCULAR COAGULATION [None]
  - MUSCLE ABSCESS [None]
  - RENAL FAILURE ACUTE [None]
